FAERS Safety Report 11425962 (Version 1)
Quarter: 2015Q3

REPORT INFORMATION
  Report Type: Spontaneous
  Country: US (occurrence: US)
  Receive Date: 20150821
  Receipt Date: 20150821
  Transmission Date: 20151125
  Serious: No
  Sender: FDA-Public Use
  Company Number: US-ELI_LILLY_AND_COMPANY-US201101000092

PATIENT
  Age: 80 Year
  Sex: Female

DRUGS (2)
  1. LANTUS [Concomitant]
     Active Substance: INSULIN GLARGINE
     Indication: DIABETES MELLITUS
     Dosage: 60 U, DAILY (1/D)
     Dates: start: 2000
  2. HUMAN INSULIN [Suspect]
     Active Substance: INSULIN HUMAN

REACTIONS (3)
  - Disturbance in attention [Unknown]
  - Drug dose omission [Unknown]
  - Confusional state [Unknown]

NARRATIVE: CASE EVENT DATE: 20101205
